FAERS Safety Report 5373285-5 (Version None)
Quarter: 2007Q2

REPORT INFORMATION
  Report Type: 
  Country: None (occurrence: None)
  Receive Date: 20070626
  Receipt Date: 20070626
  Transmission Date: 20071010
  Serious: Yes (Life-Threatening, Hospitalization)
  Sender: FDA-Public Use
  Company Number: None

PATIENT
  Age: 27 Year
  Sex: Female
  Weight: 61.2356 kg

DRUGS (1)
  1. KEPPRA [Suspect]
     Indication: CONVULSION
     Dosage: 250 MG 2 TIMES / DAY PO
     Route: 048
     Dates: start: 20060108, end: 20060920

REACTIONS (8)
  - AMNESIA [None]
  - CONDITION AGGRAVATED [None]
  - CONFUSIONAL STATE [None]
  - DISSOCIATION [None]
  - DYSGRAPHIA [None]
  - FATIGUE [None]
  - GRAND MAL CONVULSION [None]
  - PARTIAL SEIZURES [None]
